FAERS Safety Report 8064581-1 (Version None)
Quarter: 2012Q1

REPORT INFORMATION
  Report Type: 
  Country: None (occurrence: None)
  Receive Date: 20120123
  Receipt Date: 20120117
  Transmission Date: 20120608
  Serious: Yes (Other)
  Sender: FDA-Public Use
  Company Number: US-RB-036351-12

PATIENT
  Sex: Female

DRUGS (1)
  1. SUBOXONE [Suspect]
     Indication: DRUG DEPENDENCE
     Dosage: UNKNOWN
     Route: 065

REACTIONS (3)
  - COMPLICATION OF PREGNANCY [None]
  - HAEMORRHAGE IN PREGNANCY [None]
  - MATERNAL EXPOSURE DURING PREGNANCY [None]
